FAERS Safety Report 11394910 (Version 2)
Quarter: 2015Q3

REPORT INFORMATION
  Report Type: Spontaneous
  Country: US (occurrence: US)
  Receive Date: 20150819
  Receipt Date: 20150915
  Transmission Date: 20151125
  Serious: Yes (Other)
  Sender: FDA-Public Use
  Company Number: US-ASTELLAS-2015US029049

PATIENT
  Age: 52 Year
  Sex: Male
  Weight: 127 kg

DRUGS (2)
  1. LEXISCAN [Suspect]
     Active Substance: REGADENOSON
     Indication: CARDIAC STRESS TEST
     Dosage: UNK UNK, UNKNOWN FREQ.
     Route: 065
     Dates: start: 20150810, end: 20150810
  2. PLAVIX [Concomitant]
     Active Substance: CLOPIDOGREL BISULFATE
     Indication: PRODUCT USED FOR UNKNOWN INDICATION
     Dosage: UNK UNK, UNKNOWN FREQ.
     Route: 065

REACTIONS (3)
  - Hypotension [Unknown]
  - Presyncope [Unknown]
  - Hypoxia [Unknown]

NARRATIVE: CASE EVENT DATE: 20150810
